FAERS Safety Report 18905703 (Version 3)
Quarter: 2021Q1

REPORT INFORMATION
  Report Type: Report from Study
  Country: US (occurrence: US)
  Receive Date: 20210217
  Receipt Date: 20210326
  Transmission Date: 20210420
  Serious: Yes (Hospitalization, Other)
  Sender: FDA-Public Use
  Company Number: US-SEATTLE GENETICS-2020SGN04624

PATIENT
  Sex: Female

DRUGS (3)
  1. TUCATINIB [Suspect]
     Active Substance: TUCATINIB
     Dosage: 50 MG
     Route: 048
  2. XELODA [Concomitant]
     Active Substance: CAPECITABINE
  3. TUCATINIB [Suspect]
     Active Substance: TUCATINIB
     Indication: PRODUCT USED FOR UNKNOWN INDICATION
     Dosage: 150 MG, BID
     Route: 065

REACTIONS (4)
  - Palmar-plantar erythrodysaesthesia syndrome [Unknown]
  - Renal failure [Unknown]
  - Incorrect dose administered [Unknown]
  - COVID-19 [Unknown]
